FAERS Safety Report 25150240 (Version 1)
Quarter: 2025Q2

REPORT INFORMATION
  Report Type: Other
  Country: PL (occurrence: PL)
  Receive Date: 20250402
  Receipt Date: 20250402
  Transmission Date: 20250716
  Serious: Yes (Hospitalization, Other)
  Sender: B BRAUN
  Company Number: PL-B.Braun Medical Inc.-2174121

PATIENT
  Age: 60 Year
  Sex: Male

DRUGS (4)
  1. CEFTRIAXONE SODIUM [Suspect]
     Active Substance: CEFTRIAXONE SODIUM
     Indication: Malaria
  2. ARTESUNATE [Concomitant]
     Active Substance: ARTESUNATE
  3. HEPARIN [Concomitant]
     Active Substance: HEPARIN SODIUM
  4. AMOXICILLIN\CLAVULANIC ACID [Concomitant]
     Active Substance: AMOXICILLIN\CLAVULANIC ACID

REACTIONS (2)
  - Nephritis [Recovered/Resolved]
  - Clostridium difficile infection [Recovered/Resolved]
